FAERS Safety Report 23489757 (Version 1)
Quarter: 2024Q1

REPORT INFORMATION
  Report Type: Spontaneous
  Country: US (occurrence: None)
  Receive Date: 20240206
  Receipt Date: 20240206
  Transmission Date: 20240410
  Serious: No
  Sender: FDA-Public Use
  Company Number: US-ROCHE-3396312

PATIENT
  Age: 45 Year
  Sex: Male
  Weight: 68.1 kg

DRUGS (6)
  1. XOLAIR [Suspect]
     Active Substance: OMALIZUMAB
     Indication: Idiopathic angioedema
     Dosage: DIVIDED INTO TWO SHOTS, LAST SHOT GIVEN ON JULY 28TH, 2023,
     Route: 058
     Dates: start: 202304
  2. FAMOTIDINE [Suspect]
     Active Substance: FAMOTIDINE
     Indication: Dyspepsia
     Route: 048
  3. FAMOTIDINE [Suspect]
     Active Substance: FAMOTIDINE
     Indication: Abdominal discomfort
  4. HYDROXYZINE [Concomitant]
     Active Substance: HYDROXYZINE HYDROCHLORIDE
     Route: 048
  5. VISTARIL [Concomitant]
     Active Substance: HYDROXYZINE PAMOATE
  6. NAPROXEN [Concomitant]
     Active Substance: NAPROXEN

REACTIONS (8)
  - Anxiety [Recovered/Resolved]
  - Off label use [Unknown]
  - Dyspnoea [Unknown]
  - Back pain [Unknown]
  - Chest pain [Unknown]
  - Breath sounds abnormal [Unknown]
  - Dyspepsia [Unknown]
  - Abdominal pain [Unknown]

NARRATIVE: CASE EVENT DATE: 20230401
